FAERS Safety Report 12328546 (Version 1)
Quarter: 2016Q2

REPORT INFORMATION
  Report Type: Spontaneous
  Country: US (occurrence: US)
  Receive Date: 20160503
  Receipt Date: 20160503
  Transmission Date: 20160815
  Serious: No
  Sender: FDA-Public Use
  Company Number: US-BEH-2015049078

PATIENT
  Sex: Female
  Weight: 47 kg

DRUGS (40)
  1. HIZENTRA [Suspect]
     Active Substance: HUMAN IMMUNOGLOBULIN G
     Route: 058
  2. LOSARTAN. [Concomitant]
     Active Substance: LOSARTAN
  3. IMITREX [Concomitant]
     Active Substance: SUMATRIPTAN SUCCINATE
  4. LOPERAMIDE [Concomitant]
     Active Substance: LOPERAMIDE
  5. PREMARIN VAGINAL [Concomitant]
     Active Substance: ESTROGENS, CONJUGATED
  6. MUPIROCIN. [Concomitant]
     Active Substance: MUPIROCIN
  7. CHLORHEXIDINE [Concomitant]
     Active Substance: CHLORHEXIDINE
  8. CLOBETASOL CREAM [Concomitant]
     Active Substance: CLOBETASOL
  9. SPIRONOLACTONE. [Concomitant]
     Active Substance: SPIRONOLACTONE
  10. COMBIVENT [Concomitant]
     Active Substance: ALBUTEROL SULFATE\IPRATROPIUM BROMIDE
  11. HIZENTRA [Suspect]
     Active Substance: HUMAN IMMUNOGLOBULIN G
     Route: 058
  12. DIPHENHYDRAMINE. [Concomitant]
     Active Substance: DIPHENHYDRAMINE
  13. MONUROL [Concomitant]
     Active Substance: FOSFOMYCIN TROMETHAMINE
  14. LAMOTRIGINE. [Concomitant]
     Active Substance: LAMOTRIGINE
  15. METOPROLOL SUCC ER [Concomitant]
     Active Substance: METOPROLOL SUCCINATE
  16. HYOMAX-SL [Concomitant]
     Active Substance: HYOSCYAMINE SULFATE
  17. TRAZODONE [Concomitant]
     Active Substance: TRAZODONE HYDROCHLORIDE
  18. CREON [Concomitant]
     Active Substance: PANCRELIPASE AMYLASE\PANCRELIPASE LIPASE\PANCRELIPASE PROTEASE
  19. BISOPROLOL [Concomitant]
     Active Substance: BISOPROLOL
  20. ASPIRIN. [Concomitant]
     Active Substance: ASPIRIN
  21. QVAR [Concomitant]
     Active Substance: BECLOMETHASONE DIPROPIONATE
  22. LIDOCAINE. [Concomitant]
     Active Substance: LIDOCAINE
  23. HYDROXYZINE [Concomitant]
     Active Substance: HYDROXYZINE\HYDROXYZINE HYDROCHLORIDE
  24. CALCIUM+D [Concomitant]
  25. MELATONIN [Concomitant]
     Active Substance: MELATONIN
  26. EPIPEN [Concomitant]
     Active Substance: EPINEPHRINE
  27. ONDANSETRON [Concomitant]
     Active Substance: ONDANSETRON
  28. LAMICTAL [Concomitant]
     Active Substance: LAMOTRIGINE
  29. PROBIOTIC [Concomitant]
     Active Substance: PROBIOTICS NOS
  30. DIFLUCAN [Concomitant]
     Active Substance: FLUCONAZOLE
  31. FIORICET [Concomitant]
     Active Substance: ACETAMINOPHEN\BUTALBITAL\CAFFEINE
  32. DULERA [Concomitant]
     Active Substance: FORMOTEROL FUMARATE DIHYDRATE\MOMETASONE FUROATE
  33. ESTRADIOL. [Concomitant]
     Active Substance: ESTRADIOL
  34. OMEPRAZOLE DR [Concomitant]
     Active Substance: OMEPRAZOLE
  35. HIZENTRA [Suspect]
     Active Substance: HUMAN IMMUNOGLOBULIN G
     Indication: IMMUNODEFICIENCY COMMON VARIABLE
     Route: 058
  36. ACETAMINOPHEN. [Concomitant]
     Active Substance: ACETAMINOPHEN
  37. MAXALT [Concomitant]
     Active Substance: RIZATRIPTAN BENZOATE
  38. TRIAMCINOLONE [Concomitant]
     Active Substance: TRIAMCINOLONE
  39. VALTREX [Concomitant]
     Active Substance: VALACYCLOVIR HYDROCHLORIDE
  40. VITAMIN B12 [Concomitant]
     Active Substance: CYANOCOBALAMIN

REACTIONS (3)
  - Motion sickness [Unknown]
  - Influenza [Unknown]
  - Administration site swelling [Unknown]
